FAERS Safety Report 7929119-5 (Version None)
Quarter: 2011Q4

REPORT INFORMATION
  Report Type: 
  Country: None (occurrence: None)
  Receive Date: 20111119
  Receipt Date: 20111109
  Transmission Date: 20120403
  Serious: Yes (Other)
  Sender: FDA-Public Use
  Company Number: US-ASTRAZENECA-2011SE02170

PATIENT
  Age: 55 Year
  Sex: Female

DRUGS (3)
  1. TIZANIDINE HCL [Concomitant]
     Indication: MUSCLE SPASMS
  2. SEROQUEL [Suspect]
     Indication: DEPRESSION
     Dosage: 50-100 MG AT NIGHT
     Route: 048
  3. ARIMIDEX [Suspect]
     Indication: BREAST CANCER
     Route: 048

REACTIONS (4)
  - MALAISE [None]
  - BREAST CANCER [None]
  - INSOMNIA [None]
  - DRUG DOSE OMISSION [None]
